FAERS Safety Report 25569349 (Version 1)
Quarter: 2025Q3

REPORT INFORMATION
  Report Type: Spontaneous
  Country: US (occurrence: US)
  Receive Date: 20250716
  Receipt Date: 20250716
  Transmission Date: 20251020
  Serious: No
  Sender: ABBVIE
  Company Number: US-ABBVIE-6363226

PATIENT
  Sex: Female

DRUGS (2)
  1. RESTASIS [Suspect]
     Active Substance: CYCLOSPORINE
     Indication: Dry eye
     Dosage: 2 DROPS IN EACH EYE AT EVENING EVERY OTHER DAY
     Route: 047
  2. RESTASIS [Suspect]
     Active Substance: CYCLOSPORINE
     Dosage: 2-3 DROPS IN EACH EYE IN THE MORNING
     Route: 047

REACTIONS (5)
  - Off label use [Unknown]
  - Astigmatism [Recovering/Resolving]
  - Corneal abrasion [Recovering/Resolving]
  - Ocular discomfort [Recovering/Resolving]
  - Multiple use of single-use product [Unknown]

NARRATIVE: CASE EVENT DATE: 20250101
